FAERS Safety Report 9541037 (Version 1)
Quarter: 2013Q3

REPORT INFORMATION
  Report Type: Spontaneous
  Country: TR (occurrence: TR)
  Receive Date: 20130922
  Receipt Date: 20130922
  Transmission Date: 20140515
  Serious: Yes (Other)
  Sender: FDA-Public Use
  Company Number: TR-MYLANLABS-2013S1020635

PATIENT
  Sex: Female

DRUGS (4)
  1. OXALIPLATIN [Suspect]
     Indication: RECTAL ADENOCARCINOMA
     Dosage: 85 MG/M2 FOR 2H EVERY 2W
     Route: 064
  2. FOLINIC ACID [Suspect]
     Indication: RECTAL ADENOCARCINOMA
     Dosage: 200 MG/M2 EVERY 2W
     Route: 064
  3. FLUOROURACIL [Suspect]
     Indication: RECTAL ADENOCARCINOMA
     Dosage: 200 MG/M2 BOLUS; AND 600 MG/M2 CONTINUOUS INFUSION; EVERY 2W
     Route: 064
  4. FLUOROURACIL [Suspect]
     Indication: RECTAL ADENOCARCINOMA
     Dosage: 600 MG/M2 OVER 48H CONTINUOUS INFUSION; EVERY 2W
     Route: 064

REACTIONS (2)
  - Foetal growth restriction [Recovering/Resolving]
  - Foetal exposure during pregnancy [Recovering/Resolving]
